FAERS Safety Report 16752464 (Version 1)
Quarter: 2019Q3

REPORT INFORMATION
  Report Type: Spontaneous
  Country: FR (occurrence: FR)
  Receive Date: 20190828
  Receipt Date: 20190828
  Transmission Date: 20191005
  Serious: Yes (Other)
  Sender: FDA-Public Use
  Company Number: FR-GILEAD-2019-0425410

PATIENT
  Age: 57 Year
  Sex: Female
  Weight: 52 kg

DRUGS (2)
  1. THYROXINE SODIUM [Concomitant]
     Active Substance: LEVOTHYROXINE SODIUM
  2. BIKTARVY [Suspect]
     Active Substance: BICTEGRAVIR SODIUM\EMTRICITABINE\TENOFOVIR ALAFENAMIDE FUMARATE
     Indication: HIV INFECTION
     Dosage: 50 MG/200 MG/25 MG
     Route: 048
     Dates: start: 20190417, end: 20190617

REACTIONS (4)
  - Vomiting [Recovered/Resolved]
  - Hyperthyroidism [Recovered/Resolved]
  - Headache [Recovered/Resolved]
  - Blood thyroid stimulating hormone decreased [Recovered/Resolved]

NARRATIVE: CASE EVENT DATE: 20190420
